FAERS Safety Report 23848501 (Version 1)
Quarter: 2024Q2

REPORT INFORMATION
  Report Type: Spontaneous
  Country: US (occurrence: None)
  Receive Date: 20240511
  Receipt Date: 20240511
  Transmission Date: 20240716
  Serious: Yes (Hospitalization)
  Sender: FDA-Public Use
  Company Number: None

PATIENT
  Age: 78 Year
  Sex: Male
  Weight: 62.6 kg

DRUGS (1)
  1. AZATHIOPRINE [Suspect]
     Active Substance: AZATHIOPRINE
     Indication: Autoimmune hepatitis
     Dosage: FREQUENCY : DAILY;?
     Route: 048
     Dates: start: 20210924, end: 20210924

REACTIONS (7)
  - Diarrhoea [None]
  - Hypotension [None]
  - Pyrexia [None]
  - Vomiting [None]
  - Chills [None]
  - Bile duct stenosis [None]
  - Bile duct stone [None]

NARRATIVE: CASE EVENT DATE: 20210928
